FAERS Safety Report 6471379-4 (Version None)
Quarter: 2009Q4

REPORT INFORMATION
  Report Type: 
  Country: None (occurrence: None)
  Receive Date: 20091201
  Receipt Date: 20091116
  Transmission Date: 20100525
  Serious: Yes (Other)
  Sender: FDA-Public Use
  Company Number: 2009S1008591

PATIENT
  Sex: Female

DRUGS (3)
  1. PHOSPHOSODA FLAVOR NOT SPECIFIED [Suspect]
     Indication: COLONOSCOPY
     Dosage: ; PO
     Route: 048
     Dates: start: 20041024, end: 20041025
  2. LISINOPRIL [Concomitant]
  3. CAPTOPIRIL [Concomitant]

REACTIONS (1)
  - RENAL FAILURE CHRONIC [None]
